FAERS Safety Report 11231606 (Version 1)
Quarter: 2015Q2

REPORT INFORMATION
  Report Type: Spontaneous
  Country: US (occurrence: None)
  Receive Date: 20150629
  Receipt Date: 20150629
  Transmission Date: 20150821
  Serious: Yes (Hospitalization, Other)
  Sender: FDA-Public Use
  Company Number: None

PATIENT
  Age: 46 Year
  Sex: Male
  Weight: 117.48 kg

DRUGS (1)
  1. LEVOTHYROXIN 75 MCG UNKNOWN [Suspect]
     Active Substance: LEVOTHYROXINE
     Indication: HYPOTHYROIDISM
     Dates: start: 20141001, end: 20150627

REACTIONS (2)
  - Diverticulitis [None]
  - Gastrointestinal disorder [None]

NARRATIVE: CASE EVENT DATE: 20150501
